FAERS Safety Report 9830553 (Version 1)
Quarter: 2014Q1

REPORT INFORMATION
  Report Type: Spontaneous
  Country: US (occurrence: US)
  Receive Date: 20140120
  Receipt Date: 20140120
  Transmission Date: 20141002
  Serious: No
  Sender: FDA-Public Use
  Company Number: US-009507513-1401USA004448

PATIENT
  Age: 32 Year
  Sex: Female
  Weight: 70.3 kg

DRUGS (1)
  1. IMPLANON [Suspect]
     Indication: CONTRACEPTION
     Dosage: UNK (3 YEAR IMPLANT, IN LEFT ARM)
     Route: 059
     Dates: start: 201102

REACTIONS (7)
  - Weight increased [Unknown]
  - Feeling abnormal [Unknown]
  - Emotional disorder [Unknown]
  - Hunger [Unknown]
  - Depression [Unknown]
  - Medical device complication [Unknown]
  - Device difficult to use [Unknown]
